FAERS Safety Report 5868694-1 (Version None)
Quarter: 2008Q3

REPORT INFORMATION
  Report Type: 
  Country: None (occurrence: None)
  Receive Date: 20080903
  Receipt Date: 20080826
  Transmission Date: 20090109
  Serious: Yes (Hospitalization)
  Sender: FDA-Public Use
  Company Number: PHHY2008MX19314

PATIENT
  Sex: Female

DRUGS (2)
  1. STALEVO 100 [Suspect]
     Indication: PARKINSON'S DISEASE
     Dosage: 3 TABS (100/25/200 MG)/DAY
     Route: 048
     Dates: start: 20060501
  2. AKINETON [Concomitant]
     Indication: PARKINSON'S DISEASE
     Dosage: 2 TABS/DAY

REACTIONS (1)
  - DEHYDRATION [None]
